FAERS Safety Report 18691294 (Version 1)
Quarter: 2021Q1

REPORT INFORMATION
  Report Type: Spontaneous
  Country: FR (occurrence: FR)
  Receive Date: 20210101
  Receipt Date: 20210101
  Transmission Date: 20210419
  Serious: Yes (Other)
  Sender: FDA-Public Use
  Company Number: NVSC2020FR342743

PATIENT
  Sex: Female

DRUGS (2)
  1. TAFINLAR [Suspect]
     Active Substance: DABRAFENIB MESYLATE
     Indication: MALIGNANT MELANOMA
     Dosage: 50 MG, QD
     Route: 065
     Dates: start: 20200922
  2. MEKINIST [Suspect]
     Active Substance: TRAMETINIB DIMETHYL SULFOXIDE
     Indication: MALIGNANT MELANOMA
     Dosage: 0.5 MG, QD
     Route: 065
     Dates: start: 20200922

REACTIONS (15)
  - Diarrhoea [Unknown]
  - Hyperhidrosis [Unknown]
  - Skin atrophy [Unknown]
  - Musculoskeletal stiffness [Unknown]
  - Bone pain [Unknown]
  - Pyrexia [Unknown]
  - Decreased appetite [Unknown]
  - Epistaxis [Unknown]
  - Uterine haemorrhage [Unknown]
  - Influenza like illness [Unknown]
  - Alcohol intolerance [Unknown]
  - Off label use [Unknown]
  - Chills [Unknown]
  - Alopecia [Unknown]
  - Dizziness [Unknown]
